FAERS Safety Report 15611575 (Version 1)
Quarter: 2018Q4

REPORT INFORMATION
  Report Type: Spontaneous
  Country: FR (occurrence: FR)
  Receive Date: 20181113
  Receipt Date: 20181113
  Transmission Date: 20190205
  Serious: Yes (Hospitalization)
  Sender: FDA-Public Use
  Company Number: FR-ACCORD-092132

PATIENT
  Age: 37 Year
  Sex: Male
  Weight: 70 kg

DRUGS (11)
  1. ENBREL [Suspect]
     Active Substance: ETANERCEPT
     Indication: ANKYLOSING SPONDYLITIS
     Route: 058
     Dates: start: 20060701, end: 20100701
  2. PRAVASTATIN. [Concomitant]
     Active Substance: PRAVASTATIN
  3. DAFALGAN CODEINE [Concomitant]
     Active Substance: ACETAMINOPHEN\CODEINE PHOSPHATE
  4. REMICADE [Suspect]
     Active Substance: INFLIXIMAB
     Indication: ANKYLOSING SPONDYLITIS
     Route: 042
     Dates: start: 20111201, end: 20120901
  5. SPECIAFOLDINE [Concomitant]
     Active Substance: FOLIC ACID
  6. ESOMEPRAZOLE. [Concomitant]
     Active Substance: ESOMEPRAZOLE MAGNESIUM
  7. RIVOTRIL [Concomitant]
     Active Substance: CLONAZEPAM
  8. LAROXYL [Concomitant]
     Active Substance: AMITRIPTYLINE HYDROCHLORIDE
  9. METHOTREXATE. [Suspect]
     Active Substance: METHOTREXATE
     Indication: ANKYLOSING SPONDYLITIS
     Route: 048
     Dates: start: 2007
  10. BIPROFENID [Concomitant]
     Active Substance: KETOPROFEN
  11. HUMIRA [Suspect]
     Active Substance: ADALIMUMAB
     Indication: ANKYLOSING SPONDYLITIS
     Dates: start: 20100901, end: 20110101

REACTIONS (1)
  - Testicular seminoma (pure) stage I [Recovered/Resolved]

NARRATIVE: CASE EVENT DATE: 20120901
